FAERS Safety Report 22180290 (Version 1)
Quarter: 2023Q2

REPORT INFORMATION
  Report Type: Spontaneous
  Country: US (occurrence: US)
  Receive Date: 20230406
  Receipt Date: 20230406
  Transmission Date: 20230721
  Serious: No
  Sender: FDA-Public Use
  Company Number: US-PFIZER INC-PV202300062714

PATIENT
  Age: 35 Year

DRUGS (4)
  1. PAXLOVID [Suspect]
     Active Substance: NIRMATRELVIR\RITONAVIR
     Indication: COVID-19 treatment
     Dosage: UNK
  2. BUPROPION [Concomitant]
     Active Substance: BUPROPION
     Dosage: 150 MG, 1X/DAY
     Dates: end: 20230331
  3. VYVANSE [Concomitant]
     Active Substance: LISDEXAMFETAMINE DIMESYLATE
     Dosage: 40 MG, 1X/DAY
     Dates: end: 20230331
  4. CODEINE GUAIFENESIN [Concomitant]
     Active Substance: CODEINE PHOSPHATE\GUAIFENESIN
     Dosage: 5 ML, 1X/DAY
     Dates: end: 20230403

REACTIONS (3)
  - Dysgeusia [Unknown]
  - Abnormal dreams [Unknown]
  - Poor quality sleep [Unknown]

NARRATIVE: CASE EVENT DATE: 20230404
